FAERS Safety Report 7093950-1 (Version None)
Quarter: 2010Q4

REPORT INFORMATION
  Report Type: 
  Country: None (occurrence: None)
  Receive Date: 20101110
  Receipt Date: 20101101
  Transmission Date: 20110411
  Serious: No
  Sender: FDA-Public Use
  Company Number: US-B.I. PHARMACEUTICALS,INC./RIDGEFIELD-2010-BP-11632BP

PATIENT
  Sex: Female

DRUGS (14)
  1. SPIRIVA [Suspect]
     Indication: CHRONIC OBSTRUCTIVE PULMONARY DISEASE
     Dosage: 18 MCG
     Route: 055
     Dates: start: 20101008, end: 20101013
  2. SPIRIVA [Suspect]
     Indication: DYSPNOEA
  3. SPIRIVA [Suspect]
     Indication: EMPHYSEMA
  4. COUMADIN [Concomitant]
     Indication: ATRIAL FIBRILLATION
     Route: 048
  5. QUINAPRIL [Concomitant]
     Indication: CARDIAC DISORDER
     Route: 048
  6. HYDRODIURAL [Concomitant]
     Indication: FLUID RETENTION
     Route: 048
  7. KLOR-CON [Concomitant]
     Indication: PROPHYLAXIS
     Route: 048
  8. FOSAMAX [Concomitant]
     Indication: OSTEOPOROSIS
     Route: 048
  9. IPRATROPIUM BROMIDE [Concomitant]
     Indication: NASAL CONGESTION
     Route: 045
  10. SYNTHROID [Concomitant]
     Indication: HYPOTHYROIDISM
     Route: 048
  11. LENOXIN [Concomitant]
     Indication: CARDIAC DISORDER
     Route: 048
  12. POTASSIUM CHLORIDE [Concomitant]
  13. CRESTOR [Concomitant]
  14. DILTIAZEM [Concomitant]

REACTIONS (7)
  - CHEST PAIN [None]
  - COUGH [None]
  - FEELING ABNORMAL [None]
  - NAUSEA [None]
  - PAIN [None]
  - PNEUMONIA [None]
  - SPUTUM INCREASED [None]
